FAERS Safety Report 8301581-8 (Version None)
Quarter: 2012Q2

REPORT INFORMATION
  Report Type: 
  Country: None (occurrence: None)
  Receive Date: 20120420
  Receipt Date: 20120416
  Transmission Date: 20120825
  Serious: Yes (Death)
  Sender: FDA-Public Use
  Company Number: 2012SP001135

PATIENT
  Sex: Male

DRUGS (3)
  1. AMBIEN [Concomitant]
     Indication: PRODUCT USED FOR UNKNOWN INDICATION
  2. LUNESTA [Suspect]
     Indication: PRODUCT USED FOR UNKNOWN INDICATION
     Route: 048
     Dates: end: 20120401
  3. ROXICODONE [Concomitant]
     Indication: PAIN

REACTIONS (2)
  - INTENTIONAL DRUG MISUSE [None]
  - DEATH [None]
